FAERS Safety Report 15196766 (Version 3)
Quarter: 2020Q3

REPORT INFORMATION
  Report Type: Report from Study
  Country: GB (occurrence: GB)
  Receive Date: 20180725
  Receipt Date: 20180918
  Transmission Date: 20201105
  Serious: Yes (Death, Hospitalization)
  Sender: FDA-Public Use
  Company Number: GB-JNJFOC-20180718695

PATIENT
  Age: 61 Year
  Sex: Male
  Weight: 69.3 kg

DRUGS (7)
  1. DARATUMUMAB [Suspect]
     Active Substance: DARATUMUMAB
     Indication: PLASMA CELL MYELOMA
     Route: 058
     Dates: start: 20180606, end: 20180705
  2. POTASSIUM [Concomitant]
     Active Substance: POTASSIUM
     Indication: BLOOD POTASSIUM DECREASED
     Route: 042
  3. CO?AMOXICLAV [Concomitant]
     Active Substance: AMOXICILLIN\CLAVULANATE POTASSIUM
     Indication: PYREXIA
     Route: 065
  4. AMBISOME [Concomitant]
     Active Substance: AMPHOTERICIN B
     Indication: LOWER RESPIRATORY TRACT INFECTION
     Route: 065
  5. MEROPENEM. [Concomitant]
     Active Substance: MEROPENEM
     Indication: PYREXIA
     Route: 065
  6. AMLODIPINE [Concomitant]
     Active Substance: AMLODIPINE BESYLATE
     Indication: HYPERTENSION
     Route: 065
  7. DARATUMUMAB [Suspect]
     Active Substance: DARATUMUMAB
     Route: 058

REACTIONS (2)
  - Acute kidney injury [Not Recovered/Not Resolved]
  - Febrile neutropenia [Fatal]

NARRATIVE: CASE EVENT DATE: 20180712
